FAERS Safety Report 24589597 (Version 1)
Quarter: 2024Q4

REPORT INFORMATION
  Report Type: Spontaneous
  Country: US (occurrence: None)
  Receive Date: 20241106
  Receipt Date: 20241106
  Transmission Date: 20250115
  Serious: Yes (Other)
  Sender: Public
  Company Number: None

PATIENT
  Age: 36 Year
  Sex: Female

DRUGS (1)
  1. HEMABATE [Suspect]
     Active Substance: CARBOPROST TROMETHAMINE
     Dosage: OTHER FREQUENCY : ONCE;?
     Route: 030
     Dates: start: 20241025

REACTIONS (2)
  - Injection site haemorrhage [None]
  - Injection site erythema [None]

NARRATIVE: CASE EVENT DATE: 20241025
